FAERS Safety Report 12537591 (Version 2)
Quarter: 2016Q3

REPORT INFORMATION
  Report Type: Report from Study
  Country: US (occurrence: US)
  Receive Date: 20160707
  Receipt Date: 20160808
  Transmission Date: 20161109
  Serious: Yes (Other)
  Sender: FDA-Public Use
  Company Number: US-BAYER-2016-091460

PATIENT
  Age: 65 Year
  Sex: Male

DRUGS (2)
  1. NEXAVAR [Suspect]
     Active Substance: SORAFENIB
     Indication: HEPATOCELLULAR CARCINOMA
     Dosage: 600 MG DAILY DOSE (200 MG IN THE MORNING AND 400 MG IN THE EVENING)
     Route: 048
     Dates: start: 20160620
  2. NEXAVAR [Suspect]
     Active Substance: SORAFENIB
     Indication: HEPATOCELLULAR CARCINOMA
     Dosage: 200 MG, BID
     Route: 048
     Dates: start: 20160425, end: 20160619

REACTIONS (10)
  - Peripheral swelling [None]
  - Pain in extremity [Recovering/Resolving]
  - Fatigue [Recovered/Resolved]
  - Diarrhoea [None]
  - Gait disturbance [None]
  - Dysphonia [None]
  - Dyspnoea [None]
  - Dry skin [None]
  - Gait disturbance [Recovering/Resolving]
  - Diarrhoea [Recovered/Resolved]

NARRATIVE: CASE EVENT DATE: 2016
